FAERS Safety Report 23294479 (Version 1)
Quarter: 2023Q4

REPORT INFORMATION
  Report Type: Report from Study
  Country: US (occurrence: US)
  Receive Date: 20231213
  Receipt Date: 20231213
  Transmission Date: 20240109
  Serious: Yes (Hospitalization, Other)
  Sender: FDA-Public Use
  Company Number: US-ABBVIE-5535804

PATIENT
  Sex: Male

DRUGS (3)
  1. HUMIRA [Suspect]
     Active Substance: ADALIMUMAB
     Indication: Crohn^s disease
     Dosage: STRENGTH: 40 MG
     Route: 058
     Dates: start: 202311
  2. HUMIRA [Suspect]
     Active Substance: ADALIMUMAB
     Indication: Gaucher^s disease
  3. VPRIV [Suspect]
     Active Substance: VELAGLUCERASE ALFA
     Indication: Product used for unknown indication
     Route: 065

REACTIONS (4)
  - Mental disorder [Unknown]
  - Flat affect [Unknown]
  - Speech latency [Unknown]
  - Depression [Unknown]

NARRATIVE: CASE EVENT DATE: 20230101
